FAERS Safety Report 13988374 (Version 1)
Quarter: 2017Q3

REPORT INFORMATION
  Report Type: Report from Study
  Country: US (occurrence: US)
  Receive Date: 20170919
  Receipt Date: 20170919
  Transmission Date: 20171128
  Serious: No
  Sender: FDA-Public Use
  Company Number: US-INCYTE CORPORATION-2017IN006759

PATIENT

DRUGS (1)
  1. JAKAFI [Suspect]
     Active Substance: RUXOLITINIB
     Indication: POLYCYTHAEMIA VERA
     Dosage: UNKNOWN DOSE/FREQUENCY

REACTIONS (4)
  - Haemoglobin increased [Unknown]
  - White blood cell count increased [Unknown]
  - Pruritus [Unknown]
  - Platelet count increased [Unknown]
